FAERS Safety Report 9418116 (Version 1)
Quarter: 2013Q3

REPORT INFORMATION
  Report Type: Spontaneous
  Country: US (occurrence: US)
  Receive Date: 20130724
  Receipt Date: 20130724
  Transmission Date: 20140515
  Serious: No
  Sender: FDA-Public Use
  Company Number: US-US-EMD SERONO, INC.-7065114

PATIENT
  Sex: Female
  Weight: 66 kg

DRUGS (12)
  1. REBIF [Suspect]
     Indication: MULTIPLE SCLEROSIS
     Route: 058
     Dates: start: 201002
  2. ACCOLATE [Concomitant]
     Indication: ASTHMA
     Route: 048
  3. ALBUTEROL SULFATE                  /00139502/ [Concomitant]
     Indication: ASTHMA
     Route: 048
  4. ANTIVERT                           /00007101/ [Concomitant]
     Indication: VERTIGO
     Route: 048
  5. BIOTIN [Concomitant]
     Indication: ALOPECIA
     Route: 048
  6. ESTROVEN                           /02150801/ [Concomitant]
     Indication: HORMONE THERAPY
     Route: 048
  7. FIBERCON                           /00567702/ [Concomitant]
     Indication: CONSTIPATION
  8. FISH OIL [Concomitant]
     Indication: CARDIAC DISORDER
  9. NEXIUM                             /01479302/ [Concomitant]
     Indication: GASTROOESOPHAGEAL REFLUX DISEASE
     Route: 048
  10. ORPHENADRINE CITRATE [Concomitant]
     Indication: MUSCLE RELAXANT THERAPY
     Route: 048
  11. TRIAMTERENE/HCTZ [Concomitant]
     Indication: FLUID RETENTION
     Route: 048
  12. VITAMIN B COMPLEX                  /00003501/ [Concomitant]
     Indication: SUPPLEMENTATION THERAPY

REACTIONS (8)
  - Mydriasis [Not Recovered/Not Resolved]
  - Asthenopia [Not Recovered/Not Resolved]
  - Migraine [Not Recovered/Not Resolved]
  - Photophobia [Not Recovered/Not Resolved]
  - Dry eye [Not Recovered/Not Resolved]
  - Headache [Not Recovered/Not Resolved]
  - Injection site erythema [Unknown]
  - Injection site pruritus [Unknown]
